FAERS Safety Report 25934282 (Version 1)
Quarter: 2025Q4

REPORT INFORMATION
  Report Type: Spontaneous
  Country: EU (occurrence: EU)
  Receive Date: 20251017
  Receipt Date: 20251017
  Transmission Date: 20260117
  Serious: Yes (Other)
  Sender: STRIDES
  Company Number: None

PATIENT
  Age: 28 Year
  Sex: Female
  Weight: 79 kg

DRUGS (15)
  1. PREDNISOLONE [Suspect]
     Active Substance: PREDNISOLONE
     Indication: Immunosuppressant drug therapy
     Dosage: 5 MILLIGRAM, QD
     Route: 065
  2. BUDESONIDE [Suspect]
     Active Substance: BUDESONIDE
     Indication: IgA nephropathy
     Dosage: 16 MILLIGRAM, QD TARGETED RELEASE [DOSE EQUIVALENT TO 8 MG PREDNISOLONE] 9 MONTHS
     Route: 065
  3. BUDESONIDE [Suspect]
     Active Substance: BUDESONIDE
     Dosage: 4 MILLIGRAM, QD (TARGETED RELEASE [DOSE EQUIVALENT TO 8 MG PREDNISOLONE]; TRF-BUDESONIDE) DOSE AS 4
     Route: 065
  4. MYCOPHENOLIC ACID [Concomitant]
     Active Substance: MYCOPHENOLIC ACID
     Indication: Immunosuppressant drug therapy
     Dosage: 1.44 MILLIGRAM, QD
     Route: 065
  5. BELATACEPT [Concomitant]
     Active Substance: BELATACEPT
     Indication: Immunosuppressant drug therapy
     Dosage: 400 MILLIGRAM 6 MG/KG BW; Q4W
     Route: 065
     Dates: start: 202205
  6. DILTIAZEM [Concomitant]
     Active Substance: DILTIAZEM
     Indication: Blood pressure management
     Dosage: 180 MILLIGRAM
     Route: 065
  7. DILTIAZEM [Concomitant]
     Active Substance: DILTIAZEM
     Indication: Chronic kidney disease
     Dosage: INCREASED STEPWISE TO 360 MG
     Route: 065
  8. RAMIPRIL [Concomitant]
     Active Substance: RAMIPRIL
     Indication: Blood pressure management
     Dosage: 10 MILLIGRAM, QD
     Route: 065
  9. RAMIPRIL [Concomitant]
     Active Substance: RAMIPRIL
     Indication: Chronic kidney disease
     Dosage: 5 MILLIGRAM, QD
     Route: 065
  10. SPIRONOLACTONE [Concomitant]
     Active Substance: SPIRONOLACTONE
     Indication: Blood pressure management
     Dosage: 25 MILLIGRAM, QD
     Route: 065
  11. SPIRONOLACTONE [Concomitant]
     Active Substance: SPIRONOLACTONE
     Indication: Chronic kidney disease
  12. DAPAGLIFLOZIN [Concomitant]
     Active Substance: DAPAGLIFLOZIN
     Indication: Blood pressure management
     Dosage: 10 MILLIGRAM, QD
     Route: 065
  13. DAPAGLIFLOZIN [Concomitant]
     Active Substance: DAPAGLIFLOZIN
     Indication: Chronic kidney disease
  14. PANTOPRAZOLE [Concomitant]
     Active Substance: PANTOPRAZOLE
     Indication: Gastrooesophageal reflux disease
     Dosage: IN VARYING DOSES (20-80 MG)
     Route: 065
  15. MOXONIDINE [Concomitant]
     Active Substance: MOXONIDINE
     Indication: Blood pressure management
     Dosage: 0.3 MILLIGRAM, QD
     Route: 065

REACTIONS (20)
  - Adrenal insufficiency [Recovered/Resolved]
  - Haematoma [Not Recovered/Not Resolved]
  - Swelling face [Recovered/Resolved]
  - Hair growth abnormal [Unknown]
  - Alopecia [Recovered/Resolved]
  - Alopecia [Recovered/Resolved]
  - Oedema peripheral [Recovered/Resolved]
  - Petechiae [Recovered/Resolved]
  - Arthralgia [Recovered/Resolved]
  - Bowel movement irregularity [Recovered/Resolved]
  - Vomiting [Recovered/Resolved]
  - Dysbiosis [Recovering/Resolving]
  - Cortisol decreased [Unknown]
  - Cortisol free urine decreased [Unknown]
  - Weight increased [Recovered/Resolved]
  - Dyspepsia [Recovered/Resolved]
  - Fatigue [Recovered/Resolved]
  - Diarrhoea [Recovered/Resolved]
  - Amenorrhoea [Recovered/Resolved]
  - Off label use [Unknown]
